FAERS Safety Report 15981824 (Version 2)
Quarter: 2019Q1

REPORT INFORMATION
  Report Type: Spontaneous
  Country: SK (occurrence: SK)
  Receive Date: 20190219
  Receipt Date: 20190221
  Transmission Date: 20190418
  Serious: Yes (Other)
  Sender: FDA-Public Use
  Company Number: SK-ELI_LILLY_AND_COMPANY-SK201902006949

PATIENT
  Age: 47 Year
  Sex: Male

DRUGS (10)
  1. MEROPENEM. [Suspect]
     Active Substance: MEROPENEM
     Indication: NECROTISING FASCIITIS
     Dosage: UNK UNK, UNKNOWN
     Route: 065
  2. RITUXIMAB. [Concomitant]
     Active Substance: RITUXIMAB
     Indication: LYMPHOMA
     Dosage: UNK, UNKNOWN
     Route: 065
  3. [DEXAMETHASONE] [Suspect]
     Active Substance: DEXAMETHASONE
     Indication: LYMPHOMA
     Dosage: UNK UNK, UNKNOWN
     Route: 065
     Dates: start: 20170424
  4. METRONIDAZOLE. [Suspect]
     Active Substance: METRONIDAZOLE
     Indication: NECROTISING FASCIITIS
     Dosage: UNK UNK, UNKNOWN
     Route: 065
  5. GEMCITABINE HYDROCHLORIDE. [Suspect]
     Active Substance: GEMCITABINE HYDROCHLORIDE
     Indication: LYMPHOMA
     Dosage: UNK UNK, UNKNOWN
     Route: 065
  6. ZARZIO [Suspect]
     Active Substance: FILGRASTIM
     Indication: NECROTISING FASCIITIS
     Dosage: UNK UNK, UNKNOWN
     Route: 065
  7. BENDAMUSTINE [Concomitant]
     Active Substance: BENDAMUSTINE
     Indication: LYMPHOMA
     Dosage: UNK, UNKNOWN
     Route: 065
  8. AMIKACIN. [Suspect]
     Active Substance: AMIKACIN
     Indication: NECROTISING FASCIITIS
     Dosage: UNK UNK, UNKNOWN
     Route: 065
  9. FLUCONAZOLE. [Suspect]
     Active Substance: FLUCONAZOLE
     Indication: NECROTISING FASCIITIS
     Dosage: UNK UNK, UNKNOWN
     Route: 065
     Dates: start: 20170419
  10. LOW MOLECULAR WEIGHT HEPARIN [Suspect]
     Active Substance: UNSPECIFIED INGREDIENT
     Indication: NECROTISING FASCIITIS
     Dosage: UNK UNK, UNKNOWN
     Route: 065

REACTIONS (2)
  - Septic shock [Unknown]
  - Off label use [Unknown]
